FAERS Safety Report 11102506 (Version 1)
Quarter: 2015Q2

REPORT INFORMATION
  Report Type: Spontaneous
  Country: US (occurrence: None)
  Receive Date: 20150508
  Receipt Date: 20150508
  Transmission Date: 20150821
  Serious: Yes (Other)
  Sender: FDA-Public Use
  Company Number: None

PATIENT
  Age: 60 Year
  Sex: Female
  Weight: 63 kg

DRUGS (1)
  1. VIVITROL [Suspect]
     Active Substance: NALTREXONE

REACTIONS (4)
  - Dyspnoea [None]
  - Pneumonitis [None]
  - Injection site nodule [None]
  - Eosinophilia [None]

NARRATIVE: CASE EVENT DATE: 20150314
